FAERS Safety Report 10067188 (Version 1)
Quarter: 2014Q2

REPORT INFORMATION
  Report Type: Spontaneous
  Country: US (occurrence: None)
  Receive Date: 20140408
  Receipt Date: 20140408
  Transmission Date: 20141212
  Serious: Yes (Hospitalization)
  Sender: FDA-Public Use
  Company Number: None

PATIENT
  Age: 57 Year
  Sex: Female
  Weight: 62.6 kg

DRUGS (2)
  1. FLAGYL [Suspect]
     Indication: DIVERTICULITIS
     Route: 048
     Dates: start: 20140405, end: 20140407
  2. FLAGYL [Suspect]
     Indication: INFECTION
     Route: 048
     Dates: start: 20140405, end: 20140407

REACTIONS (11)
  - Hypoaesthesia [None]
  - Hypoaesthesia [None]
  - Nausea [None]
  - Headache [None]
  - Musculoskeletal stiffness [None]
  - Dizziness [None]
  - Heart rate increased [None]
  - Pain [None]
  - Insomnia [None]
  - Hypophagia [None]
  - Impaired driving ability [None]
